FAERS Safety Report 20161312 (Version 1)
Quarter: 2021Q4

REPORT INFORMATION
  Report Type: Spontaneous
  Country: US (occurrence: None)
  Receive Date: 20211207
  Receipt Date: 20211207
  Transmission Date: 20220303
  Serious: No
  Sender: FDA-Public Use
  Company Number: None

PATIENT
  Age: 46 Year
  Sex: Female
  Weight: 60.75 kg

DRUGS (1)
  1. QVAR REDIHALER [Suspect]
     Active Substance: BECLOMETHASONE DIPROPIONATE
     Indication: Asthma
     Dosage: OTHER QUANTITY : 1 PUFF(S);?FREQUENCY : TWICE A DAY;?
     Route: 055
     Dates: start: 20191231, end: 20211207

REACTIONS (4)
  - Palpitations [None]
  - Pulse abnormal [None]
  - Tinnitus [None]
  - Drug delivery system malfunction [None]

NARRATIVE: CASE EVENT DATE: 20211207
